FAERS Safety Report 6574161-2 (Version None)
Quarter: 2010Q1

REPORT INFORMATION
  Report Type: 
  Country: None (occurrence: None)
  Receive Date: 20100201
  Receipt Date: 20100118
  Transmission Date: 20100710
  Serious: Yes (Hospitalization)
  Sender: FDA-Public Use
  Company Number: JPI-P-008404

PATIENT
  Age: 40 Year
  Sex: Female
  Weight: 62.1428 kg

DRUGS (19)
  1. XYREM [Suspect]
     Indication: FIBROMYALGIA
     Dosage: SEE IMAGE
     Route: 048
     Dates: start: 20090101, end: 20090101
  2. XYREM [Suspect]
     Indication: NARCOLEPSY
     Dosage: SEE IMAGE
     Route: 048
     Dates: start: 20090101, end: 20090101
  3. XYREM [Suspect]
     Indication: FIBROMYALGIA
     Dosage: SEE IMAGE
     Route: 048
     Dates: start: 20090325, end: 20090101
  4. XYREM [Suspect]
     Indication: NARCOLEPSY
     Dosage: SEE IMAGE
     Route: 048
     Dates: start: 20090325, end: 20090101
  5. XYREM [Suspect]
     Indication: FIBROMYALGIA
     Dosage: SEE IMAGE
     Route: 048
     Dates: start: 20090101, end: 20090524
  6. XYREM [Suspect]
     Indication: NARCOLEPSY
     Dosage: SEE IMAGE
     Route: 048
     Dates: start: 20090101, end: 20090524
  7. XYREM [Suspect]
     Indication: FIBROMYALGIA
     Dosage: SEE IMAGE
     Route: 048
     Dates: start: 20090525, end: 20090827
  8. XYREM [Suspect]
     Indication: NARCOLEPSY
     Dosage: SEE IMAGE
     Route: 048
     Dates: start: 20090525, end: 20090827
  9. XYREM [Suspect]
     Indication: FIBROMYALGIA
     Dosage: SEE IMAGE
     Route: 048
     Dates: start: 20090828, end: 20091224
  10. XYREM [Suspect]
     Indication: NARCOLEPSY
     Dosage: SEE IMAGE
     Route: 048
     Dates: start: 20090828, end: 20091224
  11. XYREM [Suspect]
     Indication: FIBROMYALGIA
     Dosage: SEE IMAGE
     Route: 048
     Dates: start: 20090828, end: 20091224
  12. XYREM [Suspect]
     Indication: NARCOLEPSY
     Dosage: SEE IMAGE
     Route: 048
     Dates: start: 20090828, end: 20091224
  13. XYREM [Suspect]
     Indication: FIBROMYALGIA
     Dosage: SEE IMAGE
     Route: 048
     Dates: start: 20091225
  14. XYREM [Suspect]
     Indication: NARCOLEPSY
     Dosage: SEE IMAGE
     Route: 048
     Dates: start: 20091225
  15. LITHIUM [Concomitant]
  16. MODAFINIL [Concomitant]
  17. METHYLPHENIDATE [Concomitant]
  18. ESCITALOPRAM [Concomitant]
  19. OXYMORPHONE [Concomitant]

REACTIONS (24)
  - ABDOMINAL ADHESIONS [None]
  - BACK DISORDER [None]
  - CHEST DISCOMFORT [None]
  - CONCUSSION [None]
  - CONTUSION [None]
  - FACE INJURY [None]
  - FACIAL BONES FRACTURE [None]
  - FALL [None]
  - FEELING ABNORMAL [None]
  - GASTRIC DISORDER [None]
  - HUNGER [None]
  - JOINT INJURY [None]
  - MULTIPLE INJURIES [None]
  - PERIORBITAL HAEMATOMA [None]
  - POLLAKIURIA [None]
  - PYREXIA [None]
  - RESPIRATORY RATE INCREASED [None]
  - RESTLESSNESS [None]
  - RIB FRACTURE [None]
  - SCAR [None]
  - SOMNAMBULISM [None]
  - SUDDEN ONSET OF SLEEP [None]
  - SWELLING [None]
  - VOMITING [None]
